FAERS Safety Report 24750956 (Version 1)
Quarter: 2024Q4

REPORT INFORMATION
  Report Type: Report from Study
  Country: US (occurrence: US)
  Receive Date: 20241219
  Receipt Date: 20241219
  Transmission Date: 20250115
  Serious: Yes (Other)
  Sender: ABBVIE
  Company Number: US-ABBVIE-6047960

PATIENT
  Age: 55 Year
  Sex: Female

DRUGS (1)
  1. CREON [Suspect]
     Active Substance: PANCRELIPASE AMYLASE\PANCRELIPASE LIPASE\PANCRELIPASE PROTEASE
     Indication: Product used for unknown indication
     Route: 048
     Dates: start: 20220101

REACTIONS (11)
  - Loss of consciousness [Unknown]
  - Inflammation [Unknown]
  - Arthritis [Unknown]
  - Vertigo [Unknown]
  - Abdominal distension [Unknown]
  - Unevaluable event [Unknown]
  - General physical health deterioration [Unknown]
  - Impaired work ability [Unknown]
  - Gait disturbance [Unknown]
  - Dizziness [Unknown]
  - Fall [Unknown]

NARRATIVE: CASE EVENT DATE: 20231101
